FAERS Safety Report 12678196 (Version 2)
Quarter: 2016Q3

REPORT INFORMATION
  Report Type: Spontaneous
  Country: BR (occurrence: BR)
  Receive Date: 20160823
  Receipt Date: 20160830
  Transmission Date: 20161109
  Serious: Yes (Other)
  Sender: FDA-Public Use
  Company Number: BR-JNJFOC-20160816592

PATIENT
  Age: 57 Year
  Sex: Female

DRUGS (2)
  1. XARELTO [Suspect]
     Active Substance: RIVAROXABAN
     Indication: EMBOLISM VENOUS
     Route: 048
     Dates: start: 201607, end: 2016
  2. XARELTO [Suspect]
     Active Substance: RIVAROXABAN
     Indication: DEEP VEIN THROMBOSIS
     Route: 048
     Dates: start: 201607, end: 2016

REACTIONS (7)
  - Conjunctival haemorrhage [Recovered/Resolved]
  - Pleural effusion [Recovered/Resolved]
  - Pulmonary alveolar haemorrhage [Recovered/Resolved]
  - Dyspnoea [Not Recovered/Not Resolved]
  - Adverse event [Unknown]
  - Headache [Recovered/Resolved]
  - Gastrointestinal haemorrhage [Recovered/Resolved]

NARRATIVE: CASE EVENT DATE: 201607
